FAERS Safety Report 8853858 (Version 3)
Quarter: 2013Q1

REPORT INFORMATION
  Report Type: Spontaneous
  Country: AU (occurrence: AU)
  Receive Date: 20121022
  Receipt Date: 20130115
  Transmission Date: 20140127
  Serious: Yes (Other)
  Sender: FDA-Public Use
  Company Number: PHHY2012AU092847

PATIENT
  Age: 49 Year
  Sex: Male

DRUGS (4)
  1. GLIVEC [Suspect]
     Indication: CHRONIC MYELOID LEUKAEMIA
     Dosage: 400 MG, DAILY
     Route: 048
     Dates: start: 20120524
  2. NEXIUM [Concomitant]
  3. NIZATIDINE [Concomitant]
  4. MORPHINE [Concomitant]

REACTIONS (13)
  - Neoplasm malignant [Not Recovered/Not Resolved]
  - Second primary malignancy [Not Recovered/Not Resolved]
  - Gastrooesophageal reflux disease [Not Recovered/Not Resolved]
  - Oesophageal ulcer [Not Recovered/Not Resolved]
  - Bone pain [Not Recovered/Not Resolved]
  - Intestinal haemorrhage [Unknown]
  - Muscle spasms [Not Recovered/Not Resolved]
  - Vomiting [Not Recovered/Not Resolved]
  - Nausea [Not Recovered/Not Resolved]
  - Insomnia [Not Recovered/Not Resolved]
  - Haemorrhoids [Unknown]
  - Diverticulitis [Not Recovered/Not Resolved]
  - Arthralgia [Unknown]
